FAERS Safety Report 21441275 (Version 1)
Quarter: 2022Q4

REPORT INFORMATION
  Report Type: Spontaneous
  Country: US (occurrence: None)
  Receive Date: 20221010
  Receipt Date: 20221010
  Transmission Date: 20230113
  Serious: Yes (Disabling)
  Sender: FDA-Public Use
  Company Number: None

PATIENT
  Age: 42 Year
  Sex: Female
  Weight: 93.15 kg

DRUGS (6)
  1. SCOPOLAMINE [Suspect]
     Active Substance: SCOPOLAMINE
     Indication: Surgery
     Dosage: OTHER FREQUENCY : ONE TIME;?
     Route: 062
     Dates: start: 20220708, end: 20220709
  2. Prescriptions but not currently used Meloxicam [Concomitant]
  3. FLEXERIL [Concomitant]
     Active Substance: CYCLOBENZAPRINE HYDROCHLORIDE
  4. EPIPEN [Concomitant]
     Active Substance: EPINEPHRINE
  5. TYLENOL [Concomitant]
     Active Substance: ACETAMINOPHEN
  6. Alive multivitamin [Concomitant]

REACTIONS (4)
  - Vision blurred [None]
  - Mydriasis [None]
  - Photosensitivity reaction [None]
  - Visual acuity reduced [None]

NARRATIVE: CASE EVENT DATE: 20220709
